FAERS Safety Report 24714957 (Version 1)
Quarter: 2024Q4

REPORT INFORMATION
  Report Type: Spontaneous
  Country: US (occurrence: US)
  Receive Date: 20241210
  Receipt Date: 20241210
  Transmission Date: 20250114
  Serious: No
  Sender: ROCHE
  Company Number: US-ROCHE-10000148765

PATIENT
  Age: 41 Year
  Sex: Female

DRUGS (10)
  1. BEVACIZUMAB [Suspect]
     Active Substance: BEVACIZUMAB
     Indication: Adenocarcinoma of the cervix
     Route: 065
     Dates: start: 20220127, end: 20220715
  2. BEVACIZUMAB [Suspect]
     Active Substance: BEVACIZUMAB
     Route: 065
     Dates: start: 20220908, end: 20221020
  3. PEMBROLIZUMAB [Suspect]
     Active Substance: PEMBROLIZUMAB
     Indication: Adenocarcinoma of the cervix
     Route: 065
     Dates: start: 20220217, end: 20220715
  4. PEMBROLIZUMAB [Suspect]
     Active Substance: PEMBROLIZUMAB
     Route: 065
     Dates: start: 20220908, end: 20221020
  5. CARBOPLATIN [Suspect]
     Active Substance: CARBOPLATIN
     Indication: Adenocarcinoma of the cervix
     Route: 065
     Dates: start: 20220106, end: 20220715
  6. CARBOPLATIN [Suspect]
     Active Substance: CARBOPLATIN
     Dosage: 8 CYCLES
     Route: 065
     Dates: start: 20230220, end: 20230411
  7. PACLITAXEL [Suspect]
     Active Substance: PACLITAXEL
     Indication: Adenocarcinoma of the cervix
     Route: 065
     Dates: start: 20220106, end: 20220715
  8. PACLITAXEL [Suspect]
     Active Substance: PACLITAXEL
     Route: 065
     Dates: start: 20230220, end: 20230411
  9. IBUPROFEN [Concomitant]
     Active Substance: IBUPROFEN
  10. MORPHINE [Concomitant]
     Active Substance: MORPHINE

REACTIONS (1)
  - Disease progression [Unknown]
